FAERS Safety Report 16677981 (Version 1)
Quarter: 2019Q3

REPORT INFORMATION
  Report Type: Report from Study
  Country: CA (occurrence: CA)
  Receive Date: 20190807
  Receipt Date: 20190807
  Transmission Date: 20191004
  Serious: Yes (Other)
  Sender: FDA-Public Use
  Company Number: CA-PFIZER INC-3206609

PATIENT
  Age: 28 Year
  Sex: Male
  Weight: 84 kg

DRUGS (3)
  1. METHOTREXATE SODIUM. [Suspect]
     Active Substance: METHOTREXATE SODIUM
     Dosage: 3 DF, WEEKLY (0.4286 DOSAGE FORM (3 DOSAGE FORM,1 IN 1 W)
     Route: 048
  2. REMICADE [Suspect]
     Active Substance: INFLIXIMAB
     Indication: ANKYLOSING SPONDYLITIS
     Dosage: 400 MG, FREQ: 1 WEEK ; INTERVAL: 8
     Route: 042
  3. REMICADE [Suspect]
     Active Substance: INFLIXIMAB
     Dosage: 500 MG, FREQ: 1 WEEK ; INTERVAL: 8
     Route: 042

REACTIONS (2)
  - Ankylosing spondylitis [Unknown]
  - Hepatotoxicity [Unknown]
